FAERS Safety Report 24450689 (Version 1)
Quarter: 2024Q4

REPORT INFORMATION
  Report Type: Spontaneous
  Country: US (occurrence: None)
  Receive Date: 20241017
  Receipt Date: 20241017
  Transmission Date: 20250115
  Serious: Yes (Hospitalization)
  Sender: Public
  Company Number: None

PATIENT
  Age: 71 Year
  Sex: Female
  Weight: 22.95 kg

DRUGS (1)
  1. PONATINIB [Suspect]
     Active Substance: PONATINIB

REACTIONS (2)
  - Acute cholecystitis necrotic [None]
  - Therapy interrupted [None]

NARRATIVE: CASE EVENT DATE: 20241009
